FAERS Safety Report 9627936 (Version 2)
Quarter: 2014Q2

REPORT INFORMATION
  Report Type: Spontaneous
  Country: US (occurrence: US)
  Receive Date: 20131016
  Receipt Date: 20140403
  Transmission Date: 20141212
  Serious: Yes (Hospitalization)
  Sender: FDA-Public Use
  Company Number: US-B.I. PHARMACEUTICALS,INC./RIDGEFIELD-2013-BI-32352BP

PATIENT
  Sex: Male
  Weight: 113.4 kg

DRUGS (6)
  1. PRADAXA [Suspect]
     Indication: CEREBROVASCULAR ACCIDENT PROPHYLAXIS
     Route: 065
     Dates: start: 20110801
  2. ASPIRIN [Concomitant]
     Route: 065
  3. HUMALOG [Concomitant]
     Route: 065
     Dates: start: 2003
  4. LANTUS [Concomitant]
     Route: 065
     Dates: start: 2003
  5. LIPITOR [Concomitant]
     Route: 065
     Dates: start: 2009
  6. VITAMIN E [Concomitant]
     Route: 065

REACTIONS (1)
  - Ulcer haemorrhage [Unknown]
